FAERS Safety Report 9646598 (Version 3)
Quarter: 2013Q4

REPORT INFORMATION
  Report Type: Spontaneous
  Country: US (occurrence: US)
  Receive Date: 20131026
  Receipt Date: 20131230
  Transmission Date: 20140711
  Serious: Yes (Hospitalization, Other)
  Sender: FDA-Public Use
  Company Number: US-AMGEN-USASP2013074393

PATIENT
  Age: 63 Year
  Sex: Female
  Weight: 126.8 kg

DRUGS (40)
  1. PROLIA [Suspect]
     Indication: OSTEOPOROSIS
     Dosage: 60 MG, Q6MO
     Route: 058
  2. METHOTREXATE [Concomitant]
     Indication: POLYMYALGIA RHEUMATICA
     Dosage: 2.5 MG, QWK
     Route: 048
  3. NITROSTAT [Concomitant]
     Dosage: 0.4 MG, UNK
  4. ZYRTEC ALLERGY [Concomitant]
     Indication: RHINITIS ALLERGIC
     Dosage: 10 MG, QD
     Route: 048
  5. CYMBALTA [Concomitant]
     Indication: DEPRESSION
     Dosage: 30 MG, QD, DELAYED RELEASE
     Route: 048
  6. VITAMIN D3 [Concomitant]
     Indication: OSTEOPOROSIS
  7. VITAMIN B 12 [Concomitant]
     Dosage: 1 CC, 2 TIMES/MONTH
  8. FOLIC ACID [Concomitant]
     Dosage: 1 MG, QD
     Route: 048
  9. AMLODIPINE BESYLATE [Concomitant]
     Indication: HYPERTENSION
     Dosage: 5 MG, DELAYED RELEASE, QD
     Route: 048
  10. FRUSEMIDE                          /00032601/ [Concomitant]
     Dosage: 40 MG, QD
  11. TRAMADOL [Concomitant]
     Indication: FIBROMYALGIA
     Dosage: 50 MG, BID
     Route: 048
  12. TROSPIUM CHLORIDE [Concomitant]
  13. POTASSIUM CITRATE [Concomitant]
     Dosage: 15 MEQ, QD
     Route: 048
  14. NASONEX [Concomitant]
     Dosage: 50 MUG, QD
  15. ZOLOFT [Concomitant]
     Indication: DEPRESSION
     Dosage: 50 MG, QHS
     Route: 048
  16. MIRAPEX [Concomitant]
     Indication: RESTLESS LEGS SYNDROME
     Dosage: 0.25 MG, QD
     Route: 048
  17. DEXILANT [Concomitant]
     Dosage: 60 MG, QD, DELAYED REL, MULTIPHASIC DAILY
     Route: 048
  18. BUMETANIDE [Concomitant]
     Dosage: 2 MG, QD
  19. PREDNISONE [Concomitant]
     Indication: POLYMYALGIA RHEUMATICA
     Dosage: 9 MG, QD
     Route: 048
  20. LEVOTHYROXINE SODIUM [Concomitant]
     Indication: HYPOTHYROIDISM
     Dosage: 25 MUG, QD
  21. ROBAXIN [Concomitant]
     Indication: MIGRAINE
     Dosage: 500 MG, AS NECESSARY
     Route: 048
  22. NUVIGIL [Concomitant]
     Indication: SLEEP APNOEA SYNDROME
     Dosage: 250 MG, QD
     Route: 048
  23. VITAMIN D                          /00107901/ [Concomitant]
     Dosage: 50,000 UNIT CAPSULE, QD
     Route: 048
  24. FLUZONE                            /00780601/ [Concomitant]
  25. LEVAQUIN [Concomitant]
     Indication: URINARY TRACT INFECTION
     Dosage: 500 MG, QWK
     Route: 048
  26. PERCOCET                           /00446701/ [Concomitant]
     Indication: PAIN
     Dosage: 7.5- 325 MG, Q4-6 HRS
     Route: 048
  27. PERCOCET                           /00446701/ [Concomitant]
     Indication: FIBROMYALGIA
  28. LEVOTHYROXINE [Concomitant]
     Dosage: 25 MUG, QD
     Route: 048
  29. VOLTAREN                           /00372301/ [Concomitant]
     Indication: FIBROMYALGIA
     Dosage: 1 %, QD
     Route: 061
  30. NITROGLYCERIN [Concomitant]
     Indication: CHEST PAIN
     Dosage: 0.4 MG, AS NECESSARY
     Route: 060
  31. LASIX                              /00032601/ [Concomitant]
     Indication: OEDEMA PERIPHERAL
     Dosage: 40 MG, AS NECESSARY
     Route: 048
  32. METHOTREXATE SODIUM [Concomitant]
     Dosage: 17.5 MG, QWK
     Route: 048
  33. PROPANOLOL                         /00030001/ [Concomitant]
     Dosage: 20 MG, QD
     Route: 048
  34. ASPIRIN [Concomitant]
     Dosage: 81 MG, QD, DELAYED RELEASE
  35. NYSTATIN [Concomitant]
     Indication: SKIN ULCER
     Dosage: QD TO PANUS
  36. BACTROBAN                          /00753901/ [Concomitant]
     Indication: SKIN ULCER
     Dosage: QD TO PANNUS
  37. MEPILEX [Concomitant]
     Indication: SKIN ULCER
     Dosage: QD TO PANNUS
  38. FOLATE [Concomitant]
     Indication: POLYMYALGIA RHEUMATICA
  39. METHOCARBAMOL [Concomitant]
     Indication: MIGRAINE
     Dosage: UNK UNK, AS NECESSARY
  40. DEXLANSOPRAZOLE [Concomitant]
     Indication: GASTROOESOPHAGEAL REFLUX DISEASE

REACTIONS (38)
  - Hypophosphataemia [Unknown]
  - Hypomagnesaemia [Unknown]
  - Radius fracture [Unknown]
  - Fall [Unknown]
  - Hypocalcaemia [Unknown]
  - Sinusitis [Unknown]
  - Vitamin D deficiency [Unknown]
  - Hypothyroidism [Unknown]
  - Myositis [Unknown]
  - Weight increased [Unknown]
  - Thirst [Unknown]
  - Pollakiuria [Unknown]
  - Dyspnoea [Unknown]
  - Blood pressure increased [Unknown]
  - Diarrhoea [Unknown]
  - Urinary tract infection [Unknown]
  - Dysuria [Unknown]
  - Micturition urgency [Unknown]
  - Neck pain [Unknown]
  - Anxiety [Unknown]
  - Depressed mood [Unknown]
  - Lymphadenopathy [Unknown]
  - Hypoaesthesia [Unknown]
  - Paraesthesia [Unknown]
  - Muscle twitching [Unknown]
  - Palpitations [Unknown]
  - Nausea [Unknown]
  - Cough [Unknown]
  - Chills [Unknown]
  - Suprapubic pain [Unknown]
  - Headache [Unknown]
  - Joint stiffness [Unknown]
  - Restless legs syndrome [Unknown]
  - Back pain [Unknown]
  - Arthralgia [Unknown]
  - Myalgia [Unknown]
  - Fatigue [Unknown]
  - Erythema [Unknown]
